FAERS Safety Report 8384073-X (Version None)
Quarter: 2012Q2

REPORT INFORMATION
  Report Type: 
  Country: None (occurrence: None)
  Receive Date: 20120524
  Receipt Date: 20120511
  Transmission Date: 20120825
  Serious: Yes (Death, Hospitalization)
  Sender: FDA-Public Use
  Company Number: CH-ROCHE-1069805

PATIENT
  Age: 82 Year
  Sex: Male
  Weight: 80 kg

DRUGS (17)
  1. MAGNESIOCARD [Concomitant]
     Route: 048
     Dates: end: 20120103
  2. MINOCIN [Suspect]
     Indication: INFECTION
     Route: 048
     Dates: start: 20111201, end: 20120105
  3. PANTOPRAZOLE [Suspect]
     Indication: PRODUCT USED FOR UNKNOWN INDICATION
     Route: 048
     Dates: end: 20120105
  4. NEBIVOLOL HCL [Concomitant]
     Route: 048
     Dates: end: 20120105
  5. METAMUCIL-2 [Concomitant]
     Route: 048
     Dates: end: 20111229
  6. FLUTICASONE PROPIONATE/SALMETEROL [Concomitant]
     Route: 055
     Dates: end: 20120105
  7. HALCION [Concomitant]
     Route: 048
     Dates: end: 20111229
  8. RIMACTANE [Suspect]
     Indication: INFECTION
     Route: 048
     Dates: start: 20111201, end: 20120103
  9. XARELTO [Suspect]
     Indication: PRODUCT USED FOR UNKNOWN INDICATION
     Route: 048
     Dates: start: 20110101, end: 20120103
  10. ASPIRIN [Suspect]
     Indication: PRODUCT USED FOR UNKNOWN INDICATION
     Route: 048
     Dates: end: 20120105
  11. TORSEMIDE [Suspect]
     Indication: PRODUCT USED FOR UNKNOWN INDICATION
     Route: 048
     Dates: start: 20110101
  12. ATACAND HCT [Suspect]
     Indication: PRODUCT USED FOR UNKNOWN INDICATION
     Route: 048
     Dates: end: 20111230
  13. PLAVIX [Suspect]
     Indication: PRODUCT USED FOR UNKNOWN INDICATION
     Route: 048
  14. ARTEOPTIC [Concomitant]
     Route: 047
     Dates: end: 20120105
  15. DIPYRONE TAB [Concomitant]
     Route: 048
     Dates: end: 20120105
  16. DUTASTERIDE/TAMSULOSIN HYDROCHLORIDE [Concomitant]
     Route: 048
  17. NEURONTIN [Concomitant]
     Route: 048
     Dates: end: 20111229

REACTIONS (9)
  - HYPERBILIRUBINAEMIA [None]
  - LIVER INJURY [None]
  - GAMMA-GLUTAMYLTRANSFERASE INCREASED [None]
  - ASPARTATE AMINOTRANSFERASE INCREASED [None]
  - ALANINE AMINOTRANSFERASE INCREASED [None]
  - JAUNDICE [None]
  - VOMITING [None]
  - DIARRHOEA [None]
  - BLOOD ALKALINE PHOSPHATASE INCREASED [None]
